FAERS Safety Report 16847321 (Version 9)
Quarter: 2020Q2

REPORT INFORMATION
  Report Type: Report from Study
  Country: US (occurrence: US)
  Receive Date: 20190924
  Receipt Date: 20200605
  Transmission Date: 20200713
  Serious: Yes (Hospitalization, Other)
  Sender: FDA-Public Use
  Company Number: US-ACTELION-A-US2019-195816

PATIENT
  Age: 77 Year
  Sex: Male
  Weight: 65.76 kg

DRUGS (17)
  1. UPTRAVI [Suspect]
     Active Substance: SELEXIPAG
     Dosage: 1600 MCG, BID
     Route: 048
  2. BABY ASPIRIN [Concomitant]
     Active Substance: ASPIRIN
     Dosage: 81 MG, QD
  3. LEVOTHYROXINE. [Concomitant]
     Active Substance: LEVOTHYROXINE
     Dosage: 75 MG, QD
  4. METOLAZONE. [Concomitant]
     Active Substance: METOLAZONE
     Dosage: 5 MG QD ON MWF
     Dates: start: 2019
  5. SPIRONOLACTONE. [Concomitant]
     Active Substance: SPIRONOLACTONE
     Dosage: 50 MG, QD
     Dates: start: 201905
  6. OPSUMIT [Suspect]
     Active Substance: MACITENTAN
     Indication: PULMONARY HYPERTENSION
     Dosage: 10 MG, QD
     Route: 048
     Dates: start: 20190327
  7. AMLODIPINE [Concomitant]
     Active Substance: AMLODIPINE BESYLATE
  8. LASIX [Concomitant]
     Active Substance: FUROSEMIDE
     Dosage: 40 MG, QD
     Dates: start: 2019
  9. UPTRAVI [Suspect]
     Active Substance: SELEXIPAG
     Indication: PULMONARY HYPERTENSION
     Dosage: 1400 MCG, BID
     Route: 048
     Dates: start: 201908
  10. ESBRIET [Concomitant]
     Active Substance: PIRFENIDONE
     Dosage: 801 MG, TID
     Dates: start: 2018
  11. ADCIRCA [Concomitant]
     Active Substance: TADALAFIL
     Dosage: 20 MG, BID
     Dates: start: 201904, end: 201908
  12. ELIQUIS [Concomitant]
     Active Substance: APIXABAN
     Dosage: 5 MG, QD
  13. LASIX [Concomitant]
     Active Substance: FUROSEMIDE
     Dosage: 40 MG, BID
     Dates: start: 2017
  14. LEVOTHYROXINE. [Concomitant]
     Active Substance: LEVOTHYROXINE
     Dosage: 75 MCG, QD
  15. HYDROXYUREA. [Concomitant]
     Active Substance: HYDROXYUREA
     Dosage: 500 MG, BID
  16. ADCIRCA [Concomitant]
     Active Substance: TADALAFIL
     Dosage: 20 MG, QD
     Dates: start: 20200118
  17. OXYGEN. [Concomitant]
     Active Substance: OXYGEN
     Dosage: 2.5 L

REACTIONS (17)
  - Gastrointestinal obstruction [Unknown]
  - Dyspnoea exertional [Recovered/Resolved]
  - Pulmonary hypertension [Recovered/Resolved]
  - Oxygen saturation decreased [Unknown]
  - Constipation [Recovered/Resolved]
  - Dyspnoea [Recovered/Resolved]
  - Rash [Recovered/Resolved]
  - Blood bilirubin increased [Not Recovered/Not Resolved]
  - Oedema peripheral [Recovered/Resolved]
  - Pericardial effusion [Recovered/Resolved]
  - Fluid retention [Recovering/Resolving]
  - Large intestinal obstruction [Recovered/Resolved]
  - Pulmonary oedema [Recovered/Resolved]
  - Oedema [Recovered/Resolved]
  - Fluid overload [Recovered/Resolved]
  - White blood cell count decreased [Unknown]
  - Loss of personal independence in daily activities [Recovered/Resolved]

NARRATIVE: CASE EVENT DATE: 2019
